FAERS Safety Report 4527460-X (Version None)
Quarter: 2004Q4

REPORT INFORMATION
  Report Type: 
  Country: None (occurrence: None)
  Receive Date: 20041123
  Receipt Date: 20040712
  Transmission Date: 20050328
  Serious: Yes (Other)
  Sender: FDA-Public Use
  Company Number: 2004047147

PATIENT
  Age: 84 Year
  Sex: Female
  Weight: 68.9467 kg

DRUGS (4)
  1. LIPITOR [Suspect]
     Indication: BLOOD CHOLESTEROL INCREASED
     Dosage: 10 MG (10 MG, 1 IN 1 D), ORAL
     Route: 048
  2. ASPIRIN [Concomitant]
  3. VITAMINS(VITAMINS) [Concomitant]
  4. LISINOPRIL [Concomitant]

REACTIONS (4)
  - BLOOD PRESSURE INCREASED [None]
  - EATING DISORDER [None]
  - PAIN IN EXTREMITY [None]
  - WEIGHT DECREASED [None]
